FAERS Safety Report 4636490-9 (Version None)
Quarter: 2005Q2

REPORT INFORMATION
  Report Type: 
  Country: None (occurrence: None)
  Receive Date: 20050414
  Receipt Date: 20050414
  Transmission Date: 20051028
  Serious: No
  Sender: FDA-Public Use
  Company Number: None

PATIENT
  Sex: Male
  Weight: 81 kg

DRUGS (4)
  1. IRINOTECAN HCL [Suspect]
     Dates: start: 20041115
  2. FLUOROURACIL [Suspect]
  3. LEUCOVORIN CALCIUM [Suspect]
  4. OXALIPLATIN [Suspect]

REACTIONS (4)
  - ABDOMINAL PAIN [None]
  - CONSTIPATION [None]
  - NAUSEA [None]
  - VOMITING [None]
